FAERS Safety Report 11047201 (Version 1)
Quarter: 2015Q2

REPORT INFORMATION
  Report Type: Spontaneous
  Country: US (occurrence: US)
  Receive Date: 20150420
  Receipt Date: 20150420
  Transmission Date: 20150821
  Serious: Yes (Hospitalization)
  Sender: FDA-Public Use
  Company Number: US-PURDUE PHARMA-USA-2015-0122022

PATIENT
  Age: 60 Year
  Sex: Female

DRUGS (1)
  1. SENOKOT [Suspect]
     Active Substance: SENNOSIDES
     Indication: CONSTIPATION
     Dosage: 2 TABLET, UNK
     Route: 048
     Dates: start: 20150321

REACTIONS (5)
  - Peripheral coldness [Unknown]
  - Vomiting [Unknown]
  - Diarrhoea [Unknown]
  - Appendicitis [Unknown]
  - Abdominal pain upper [Unknown]
